FAERS Safety Report 20689375 (Version 1)
Quarter: 2022Q2

REPORT INFORMATION
  Report Type: Spontaneous
  Country: CA (occurrence: None)
  Receive Date: 20220408
  Receipt Date: 20220408
  Transmission Date: 20220720
  Serious: Yes (Life-Threatening)
  Sender: FDA-Public Use
  Company Number: CA-ADIENNEP-2022AD000278

PATIENT
  Age: 1 Year
  Sex: Female
  Weight: 9 kg

DRUGS (29)
  1. THIOTEPA [Suspect]
     Active Substance: THIOTEPA
     Indication: Bone marrow conditioning regimen
     Route: 041
  2. FLUDARABINE [Suspect]
     Active Substance: FLUDARABINE PHOSPHATE
     Indication: Bone marrow conditioning regimen
     Route: 041
  3. BUSULFAN [Suspect]
     Active Substance: BUSULFAN
     Indication: Bone marrow conditioning regimen
     Route: 041
  4. ALEMTUZUMAB [Suspect]
     Active Substance: ALEMTUZUMAB
     Indication: Bone marrow conditioning regimen
     Route: 041
  5. ACETAMINOPHEN [Concomitant]
     Active Substance: ACETAMINOPHEN
  6. ACYCLOVIR [Concomitant]
     Active Substance: ACYCLOVIR
  7. ALTEPLASE [Concomitant]
     Active Substance: ALTEPLASE
     Dosage: ()
  8. AMLODIPINE [Concomitant]
     Active Substance: AMLODIPINE BESYLATE
     Dosage: ()
     Route: 065
  9. CYCLOPHOSPHAMIDE [Concomitant]
     Active Substance: CYCLOPHOSPHAMIDE
  10. CYCLOSPORINE [Concomitant]
     Active Substance: CYCLOSPORINE
     Dosage: ()
     Route: 065
  11. DEXAMETHASONE [Concomitant]
     Active Substance: DEXAMETHASONE
     Dosage: ()
     Route: 065
  12. DIMENHYDRINATE [Concomitant]
     Active Substance: DIMENHYDRINATE
  13. DIPHENHYDRAMINE [Concomitant]
     Active Substance: DIPHENHYDRAMINE
  14. FAMOTIDINE [Concomitant]
     Active Substance: FAMOTIDINE
  15. FLUCONAZOLE [Concomitant]
     Active Substance: FLUCONAZOLE
  16. RUXOLITINIB [Concomitant]
     Active Substance: RUXOLITINIB
     Dosage: ()
  17. LANSOPRAZOLE [Concomitant]
     Active Substance: LANSOPRAZOLE
     Dosage: ()
  18. LEVETIRACETAM [Concomitant]
     Active Substance: LEVETIRACETAM
     Dosage: ()
     Route: 065
  19. LORAZEPAM [Concomitant]
     Active Substance: LORAZEPAM
     Dosage: ()
     Route: 065
  20. MAGNESIUM [Concomitant]
     Active Substance: MAGNESIUM
  21. METHYLPREDNISOLONE SODIUM SUCCINATE [Concomitant]
     Active Substance: METHYLPREDNISOLONE SODIUM SUCCINATE
  22. METOCLOPRAMIDE [Concomitant]
     Active Substance: METOCLOPRAMIDE
  23. MYCOPHENOLATE MOFETIL [Concomitant]
     Active Substance: MYCOPHENOLATE MOFETIL
  24. ONDANSETRON [Concomitant]
     Active Substance: ONDANSETRON
  25. PIPERACILLIN SODIUM\TAZOBACTAM SODIUM [Concomitant]
     Active Substance: PIPERACILLIN SODIUM\TAZOBACTAM SODIUM
  26. PREDNISONE [Concomitant]
     Active Substance: PREDNISONE
  27. SULFAMETHOXAZOLE\TRIMETHOPRIM [Concomitant]
     Active Substance: SULFAMETHOXAZOLE\TRIMETHOPRIM
  28. URSODIOL [Concomitant]
     Active Substance: URSODIOL
  29. CALCIUM\CHOLECALCIFEROL [Concomitant]
     Active Substance: CALCIUM\CHOLECALCIFEROL
     Dosage: ()
     Route: 065

REACTIONS (2)
  - Aplastic anaemia [Recovered/Resolved]
  - Mucosal inflammation [Recovered/Resolved]
